FAERS Safety Report 7427681-2 (Version None)
Quarter: 2011Q1

REPORT INFORMATION
  Report Type: 
  Country: None (occurrence: None)
  Receive Date: 20110302
  Receipt Date: 20101102
  Transmission Date: 20110831
  Serious: No
  Sender: FDA-Public Use
  Company Number: 011741

PATIENT
  Sex: Female

DRUGS (5)
  1. CIMZIA [Suspect]
  2. CIMZIA [Suspect]
     Indication: CROHN'S DISEASE
     Dosage: (SUBCUTANEOUS), (400 MG 1X/MONTH SUBCUTANEOUS), (400 MG 1X/MONTH SUBCUTANEOUS)
     Route: 058
     Dates: start: 20100409
  3. CIMZIA [Suspect]
     Indication: CROHN'S DISEASE
     Dosage: (SUBCUTANEOUS), (400 MG 1X/MONTH SUBCUTANEOUS), (400 MG 1X/MONTH SUBCUTANEOUS)
     Route: 058
     Dates: start: 20100729
  4. CIMZIA [Suspect]
     Indication: CROHN'S DISEASE
     Dosage: (SUBCUTANEOUS), (400 MG 1X/MONTH SUBCUTANEOUS), (400 MG 1X/MONTH SUBCUTANEOUS)
     Route: 058
     Dates: start: 20101029
  5. CIMZIA [Suspect]

REACTIONS (4)
  - ARTHRALGIA [None]
  - CROHN'S DISEASE [None]
  - GASTROINTESTINAL MOTILITY DISORDER [None]
  - DIARRHOEA [None]
